FAERS Safety Report 9448388 (Version 5)
Quarter: 2013Q4

REPORT INFORMATION
  Report Type: Spontaneous
  Country: JP (occurrence: JP)
  Receive Date: 20130808
  Receipt Date: 20131127
  Transmission Date: 20140711
  Serious: Yes (Hospitalization, Other)
  Sender: FDA-Public Use
  Company Number: JP-VERTEX PHARMACEUTICALS INC-2013-008633

PATIENT
  Age: 57 Year
  Sex: Male

DRUGS (8)
  1. TELAVIC [Suspect]
     Indication: CHRONIC HEPATITIS C
     Dosage: 1500 MG, QD
     Route: 048
     Dates: start: 20130612, end: 20130722
  2. TELAVIC [Suspect]
     Dosage: 1000 MG, QD
     Route: 048
     Dates: start: 20130723, end: 20130727
  3. REBETOL [Suspect]
     Indication: CHRONIC HEPATITIS C
     Dosage: 800 MG, QD
     Route: 048
     Dates: start: 20130612, end: 20130630
  4. REBETOL [Suspect]
     Dosage: 400 MG, QD
     Route: 048
     Dates: start: 20130701, end: 20130707
  5. REBETOL [Suspect]
     Dosage: 200 MG, QD
     Route: 048
     Dates: start: 20130708, end: 20130715
  6. REBETOL [Suspect]
     Dosage: 100 MG, QD
     Route: 048
     Dates: start: 20130716, end: 20130722
  7. PEGINTRON [Suspect]
     Indication: CHRONIC HEPATITIS C
     Dosage: 1.5 ?G/KG, QW
     Route: 058
     Dates: start: 20130612, end: 20130722
  8. ZYLORIC [Suspect]
     Dosage: 400 MG, QD
     Route: 048
     Dates: start: 20130614, end: 20130728

REACTIONS (2)
  - Erythema multiforme [Recovered/Resolved]
  - Haemoglobin decreased [Recovered/Resolved]
